FAERS Safety Report 7919328-3 (Version None)
Quarter: 2011Q4

REPORT INFORMATION
  Report Type: 
  Country: None (occurrence: None)
  Receive Date: 20111115
  Receipt Date: 20111115
  Transmission Date: 20120403
  Serious: Yes (Hospitalization)
  Sender: FDA-Public Use
  Company Number: None

PATIENT
  Sex: Female
  Weight: 70.9 kg

DRUGS (2)
  1. RIBAVIRIN [Suspect]
     Dates: start: 20111028
  2. PEGASYS [Suspect]
     Indication: HEPATITIS C
     Dates: start: 20111028

REACTIONS (2)
  - HYPOTENSION [None]
  - HAEMOGLOBIN DECREASED [None]
